FAERS Safety Report 17784113 (Version 2)
Quarter: 2020Q4

REPORT INFORMATION
  Report Type: Spontaneous
  Country: US (occurrence: US)
  Receive Date: 20200513
  Receipt Date: 20201008
  Transmission Date: 20210113
  Serious: No
  Sender: FDA-Public Use
  Company Number: US-TEVA-2020-US-1235126

PATIENT
  Age: 55 Year

DRUGS (1)
  1. IMATINIB MESYLATE TEVA [Suspect]
     Active Substance: IMATINIB MESYLATE
     Indication: CHRONIC MYELOID LEUKAEMIA
     Route: 065
     Dates: start: 201908, end: 202003

REACTIONS (7)
  - Fatigue [Recovered/Resolved]
  - Asthenia [Unknown]
  - Feeling abnormal [Recovered/Resolved]
  - Product formulation issue [Unknown]
  - Product substitution issue [Unknown]
  - Myalgia [Recovered/Resolved]
  - Muscle spasms [Recovered/Resolved]

NARRATIVE: CASE EVENT DATE: 201908
